FAERS Safety Report 17714438 (Version 3)
Quarter: 2021Q3

REPORT INFORMATION
  Report Type: Report from Study
  Country: DE (occurrence: DE)
  Receive Date: 20200427
  Receipt Date: 20210705
  Transmission Date: 20211014
  Serious: Yes (Other)
  Sender: FDA-Public Use
  Company Number: NVSC2020DE112822

PATIENT
  Age: 13 Year
  Sex: Male
  Weight: 60.8 kg

DRUGS (1)
  1. OMNITROPE [Suspect]
     Active Substance: SOMATROPIN
     Indication: GROWTH HORMONE DEFICIENCY
     Dosage: 0.9 MG (15 MG/1.5 ML), QD
     Route: 065
     Dates: start: 20171113

REACTIONS (2)
  - Enchondromatosis [Not Recovered/Not Resolved]
  - Osteochondroma [Unknown]

NARRATIVE: CASE EVENT DATE: 20200420
